FAERS Safety Report 9477506 (Version 2)
Quarter: 2013Q4

REPORT INFORMATION
  Report Type: Spontaneous
  Country: US (occurrence: US)
  Receive Date: 20130827
  Receipt Date: 20131101
  Transmission Date: 20140711
  Serious: Yes (Other)
  Sender: FDA-Public Use
  Company Number: US-ROCHE-1266841

PATIENT
  Sex: 0

DRUGS (18)
  1. XOLAIR [Suspect]
     Indication: PRODUCT USED FOR UNKNOWN INDICATION
     Route: 065
  2. ADVAIR DISKUS [Concomitant]
  3. TOPAMAX [Concomitant]
  4. LAMICTAL [Concomitant]
  5. SINGULAIR [Concomitant]
  6. FLOVENT [Concomitant]
  7. IMITREX [Concomitant]
  8. ALBUTEROL NEBULIZER [Concomitant]
  9. ROBAXIN [Concomitant]
  10. ZYRTEC [Concomitant]
  11. ZANTAC [Concomitant]
  12. BENADRYL (UNITED STATES) [Concomitant]
  13. FROVA [Concomitant]
  14. FLONASE [Concomitant]
  15. ZOFRAN [Concomitant]
  16. PRILOSEC [Concomitant]
  17. RELPAX [Concomitant]
  18. SOLU-MEDROL [Concomitant]
     Route: 042

REACTIONS (1)
  - Anaphylactic reaction [Unknown]
